FAERS Safety Report 14938426 (Version 1)
Quarter: 2018Q2

REPORT INFORMATION
  Report Type: Spontaneous
  Country: US (occurrence: US)
  Receive Date: 20180507
  Receipt Date: 20180507
  Transmission Date: 20180711
  Serious: Yes (Other)
  Sender: FDA-Public Use
  Company Number: None

PATIENT
  Age: 87 Year
  Sex: Male
  Weight: 74.25 kg

DRUGS (7)
  1. DESMOPRESSIN [Concomitant]
     Active Substance: DESMOPRESSIN
  2. MULTIVITAMIN [Concomitant]
     Active Substance: VITAMINS
  3. MAGNESIUM CITRATE. [Concomitant]
     Active Substance: MAGNESIUM CITRATE
  4. TRAZODONE [Concomitant]
     Active Substance: TRAZODONE HYDROCHLORIDE
  5. NOCTIVA [Suspect]
     Active Substance: DESMOPRESSIN ACETATE
     Indication: NOCTURIA
     Dosage: QUANTITY:2 SPRAY(S);?
     Route: 055
     Dates: start: 20180420, end: 20180422
  6. EXELON [Concomitant]
     Active Substance: RIVASTIGMINE TARTRATE
  7. LORAZEPAM. [Concomitant]
     Active Substance: LORAZEPAM

REACTIONS (6)
  - Irritability [None]
  - Product formulation issue [None]
  - Sinus disorder [None]
  - Anxiety [None]
  - Inflammation [None]
  - Agitation [None]

NARRATIVE: CASE EVENT DATE: 20180420
